FAERS Safety Report 10416620 (Version 1)
Quarter: 2014Q3

REPORT INFORMATION
  Report Type: Spontaneous
  Country: US (occurrence: US)
  Receive Date: 20140828
  Receipt Date: 20140828
  Transmission Date: 20150326
  Serious: Yes (Other)
  Sender: FDA-Public Use
  Company Number: US-PFIZER INC-2014234601

PATIENT
  Sex: Male

DRUGS (1)
  1. DILANTIN [Suspect]
     Active Substance: PHENYTOIN
     Dosage: UNK

REACTIONS (7)
  - Weight decreased [Unknown]
  - Overdose [Unknown]
  - Unresponsive to stimuli [Unknown]
  - Hallucination [Unknown]
  - Delusion [Unknown]
  - Vomiting [Unknown]
  - Anticonvulsant drug level above therapeutic [Unknown]

NARRATIVE: CASE EVENT DATE: 20100516
